FAERS Safety Report 5175331-0 (Version None)
Quarter: 2006Q4

REPORT INFORMATION
  Report Type: 
  Country: None (occurrence: None)
  Receive Date: 20061215
  Receipt Date: 20021028
  Transmission Date: 20070319
  Serious: Yes (Death, Life-Threatening, Hospitalization, Disabling)
  Sender: FDA-Public Use
  Company Number: 2002UW14708

PATIENT
  Age: 58 Year
  Sex: Female

DRUGS (6)
  1. SEROQUEL [Suspect]
     Indication: BIPOLAR DISORDER
     Route: 048
     Dates: start: 20020619
  2. LITHOBID [Concomitant]
  3. ALTACE [Concomitant]
  4. METFORMIN [Concomitant]
  5. GEODON [Concomitant]
  6. RAMIPRIL [Concomitant]

REACTIONS (3)
  - ACUTE HEPATIC FAILURE [None]
  - COMA [None]
  - HEPATIC ENZYME INCREASED [None]
